FAERS Safety Report 15391119 (Version 2)
Quarter: 2018Q4

REPORT INFORMATION
  Report Type: Spontaneous
  Country: US (occurrence: US)
  Receive Date: 20180917
  Receipt Date: 20181012
  Transmission Date: 20190204
  Serious: No
  Sender: FDA-Public Use
  Company Number: US-LNK INTERNATIONAL, INC.-2054978

PATIENT
  Sex: Male

DRUGS (8)
  1. ACETAMINOPHEN 500MG, CHLORPHENIRAMINE MALEATE 2MG, DEXTROMETHORPHAN HB [Suspect]
     Active Substance: ACETAMINOPHEN\CHLORPHENIRAMINE MALEATE\DEXTROMETHORPHAN HYDROBROMIDE
     Indication: PYREXIA
     Dates: start: 20180827, end: 20180828
  2. ACETAMINOPHEN 500MG, CHLORPHENIRAMINE MALEATE 2MG, DEXTROMETHORPHAN HB [Suspect]
     Active Substance: ACETAMINOPHEN\CHLORPHENIRAMINE MALEATE\DEXTROMETHORPHAN HYDROBROMIDE
     Indication: SNEEZING
     Dates: start: 20180827, end: 20180828
  3. FLOMAX [Concomitant]
     Active Substance: TAMSULOSIN HYDROCHLORIDE
  4. AMLODIPINE [Concomitant]
     Active Substance: AMLODIPINE BESYLATE
  5. MICROZIDE [Concomitant]
     Active Substance: HYDROCHLOROTHIAZIDE
  6. LEXAPRO [Concomitant]
     Active Substance: ESCITALOPRAM OXALATE
  7. CRESTOR [Concomitant]
     Active Substance: ROSUVASTATIN CALCIUM
  8. ACETAMINOPHEN 500MG, CHLORPHENIRAMINE MALEATE 2MG, DEXTROMETHORPHAN HB [Suspect]
     Active Substance: ACETAMINOPHEN\CHLORPHENIRAMINE MALEATE\DEXTROMETHORPHAN HYDROBROMIDE
     Indication: PARANASAL SINUS DISCOMFORT
     Dates: start: 20180827, end: 20180828

REACTIONS (2)
  - Tongue disorder [None]
  - Speech disorder [None]
